APPROVED DRUG PRODUCT: METHYLDOPA AND CHLOROTHIAZIDE
Active Ingredient: CHLOROTHIAZIDE; METHYLDOPA
Strength: 250MG;250MG
Dosage Form/Route: TABLET;ORAL
Application: A070654 | Product #001
Applicant: PAR PHARMACEUTICAL INC
Approved: Nov 6, 1987 | RLD: No | RS: No | Type: DISCN